FAERS Safety Report 4619185-7 (Version None)
Quarter: 2005Q2

REPORT INFORMATION
  Report Type: 
  Country: None (occurrence: None)
  Receive Date: 20050321
  Receipt Date: 20040824
  Transmission Date: 20051028
  Serious: Yes (Other)
  Sender: FDA-Public Use
  Company Number: 2004-08-1573

PATIENT
  Age: 46 Year
  Sex: Female
  Weight: 112.4921 kg

DRUGS (2)
  1. PEG-INTRON [Suspect]
     Indication: HEPATITIS C
     Dosage: SUBCUTRANEOUS
     Route: 058
     Dates: start: 20031111, end: 20040823
  2. REBETOL [Suspect]
     Indication: HEPATITIS C
     Dosage: ORAL
     Route: 048
     Dates: start: 20031111, end: 20040923

REACTIONS (1)
  - BLINDNESS [None]
